FAERS Safety Report 15156470 (Version 3)
Quarter: 2018Q3

REPORT INFORMATION
  Report Type: Spontaneous
  Country: US (occurrence: US)
  Receive Date: 20180717
  Receipt Date: 20180926
  Transmission Date: 20181010
  Serious: Yes (Death, Hospitalization)
  Sender: FDA-Public Use
  Company Number: US-BAUSCH-BL-2017-029457

PATIENT
  Age: 60 Year
  Sex: Male
  Weight: 113.5 kg

DRUGS (1)
  1. XIFAXAN [Suspect]
     Active Substance: RIFAXIMIN
     Indication: HEPATIC CIRRHOSIS
     Dosage: STARTED ON MAR OR APR OF 2016; (MAR OR APR OF 2016) (ABOUT A YEAR TO A YEAR AND A HALF AGO)
     Route: 048
     Dates: start: 2016, end: 20180702

REACTIONS (4)
  - Hepatic cirrhosis [Fatal]
  - Ascites [Unknown]
  - Renal failure [Fatal]
  - Hospice care [Unknown]

NARRATIVE: CASE EVENT DATE: 2016
